FAERS Safety Report 4451683-1 (Version None)
Quarter: 2004Q3

REPORT INFORMATION
  Report Type: 
  Country: None (occurrence: None)
  Receive Date: 20040915
  Receipt Date: 20040903
  Transmission Date: 20050211
  Serious: Yes (Other)
  Sender: FDA-Public Use
  Company Number: 2004232323GB

PATIENT
  Age: 54 Year
  Sex: Male
  Weight: 99.8 kg

DRUGS (8)
  1. BEXTRA [Suspect]
     Indication: OSTEOARTHRITIS
     Dosage: 10-20 MG QD ORAL
     Route: 048
     Dates: start: 20040301
  2. ALLOPURINOL [Concomitant]
  3. DUTASTERIDE [Concomitant]
  4. ALFUZOSIN [Concomitant]
  5. ATENOLOL [Concomitant]
  6. RAMIPRIL [Concomitant]
  7. CIMETIDINE [Concomitant]
  8. ZANTAC [Concomitant]

REACTIONS (1)
  - PSORIASIS [None]
